FAERS Safety Report 6024052-0 (Version None)
Quarter: 2008Q4

REPORT INFORMATION
  Report Type: 
  Country: None (occurrence: None)
  Receive Date: 20081230
  Receipt Date: 20081217
  Transmission Date: 20090506
  Serious: Yes (Hospitalization, Disabling, Other)
  Sender: FDA-Public Use
  Company Number: PHEH2008US08901

PATIENT
  Sex: Female
  Weight: 58.957 kg

DRUGS (21)
  1. FEMARA [Suspect]
     Indication: BREAST CANCER
     Dosage: 2.5 MG, QOD
     Dates: start: 20071029, end: 20071121
  2. VITAMIN E [Concomitant]
     Indication: HOT FLUSH
     Dosage: 4000 IU, BID
     Route: 048
  3. CALCIUM [Concomitant]
     Indication: OSTEOPENIA
     Dosage: 1200 MG, BID
     Route: 048
  4. VITAMIN D [Concomitant]
     Dosage: 8000 IU, UNK
     Route: 048
  5. MAGNESIUM SULFATE [Concomitant]
     Dosage: 300 MG, UNK
     Route: 048
  6. VITAMIN B6 [Concomitant]
     Indication: HOT FLUSH
     Dosage: 50 MG, BID
     Route: 048
     Dates: end: 20080812
  7. FORTICAL /USA/ [Concomitant]
     Indication: OSTEOPENIA
     Dosage: UNK
  8. GLUCOSAMINE /CHONDROITIN /MSM [Concomitant]
     Dosage: 1 UNK, BID
     Route: 048
     Dates: end: 20081107
  9. FLAXSEED OIL [Concomitant]
     Dosage: 1 UNK, BID
     Route: 048
  10. STRESSTABS [Concomitant]
     Dosage: 600 MG, QHS
     Route: 048
  11. GRAPE SEED [Concomitant]
     Dosage: 100 MG, QD
     Route: 048
     Dates: end: 20081107
  12. BIOTIN [Concomitant]
     Dosage: UNK
     Dates: start: 20080707
  13. BIOTIN [Concomitant]
     Dosage: 2.5 MG, QD
     Route: 048
     Dates: start: 20080901
  14. LORATADINE [Concomitant]
     Dosage: 10 MG QD PRN
  15. PSEUDOEPHEDRINE HYDROCHLORIDE [Concomitant]
     Dosage: 120 MG Q12 HR PRN
  16. TAGAMET [Concomitant]
  17. RANITIDINE [Concomitant]
     Indication: HYPERCHLORHYDRIA
     Dosage: 75 MG, UNK
     Route: 048
  18. TUMS [Concomitant]
     Indication: HYPERCHLORHYDRIA
  19. DIFLUCAN [Concomitant]
     Indication: FUNGAL INFECTION
     Dosage: 200 MG Q3DAYS
     Route: 048
  20. CLOTRIMAZOLE [Concomitant]
     Dosage: UNK
     Route: 061
  21. ANAESTHETICS [Concomitant]
     Dosage: UNK
     Dates: start: 20080115

REACTIONS (18)
  - ABDOMINAL DISCOMFORT [None]
  - ARTHRALGIA [None]
  - ARTHROPATHY [None]
  - ARTHROSCOPY [None]
  - BURSITIS [None]
  - CELLULITIS [None]
  - FALLOPIAN TUBE OPERATION [None]
  - HOT FLUSH [None]
  - JOINT STIFFNESS [None]
  - JOINT SWELLING [None]
  - MENISCUS LESION [None]
  - MOBILITY DECREASED [None]
  - MUSCULOSKELETAL STIFFNESS [None]
  - MYALGIA [None]
  - OEDEMA PERIPHERAL [None]
  - OOPHORECTOMY [None]
  - PHLEBITIS [None]
  - VENTRICULAR EXTRASYSTOLES [None]
